FAERS Safety Report 8336097-6 (Version None)
Quarter: 2012Q2

REPORT INFORMATION
  Report Type: 
  Country: None (occurrence: None)
  Receive Date: 20120501
  Receipt Date: 20120501
  Transmission Date: 20120825
  Serious: Yes (Hospitalization)
  Sender: FDA-Public Use
  Company Number: None

PATIENT
  Age: 82 Year
  Sex: Male
  Weight: 71.6 kg

DRUGS (14)
  1. LASIX [Concomitant]
  2. BACITRACIN [Concomitant]
  3. BENAZEPRIL HYDROCHLORIDE [Concomitant]
  4. ASPIRIN [Suspect]
     Indication: CORONARY ARTERY DISEASE
     Dosage: 81MG DAILY PER G-TUBE CHRONIC
  5. ATIVAN [Concomitant]
  6. BISACODYL [Concomitant]
  7. PLAVIX [Suspect]
     Indication: CORONARY ARTERY DISEASE
     Dosage: 75MG DAILY PER G-TUBE CHRONIC
  8. VIT D3 [Concomitant]
  9. RISPERIDONE [Concomitant]
  10. COUMADIN [Suspect]
     Indication: ATRIAL FIBRILLATION
     Dosage: CHRONIC
  11. SIMVASTATIN [Concomitant]
  12. TYLENOL (CAPLET) [Concomitant]
  13. METOPROLOL TARTRATE [Concomitant]
  14. ZOFRAN [Concomitant]

REACTIONS (2)
  - IRON DEFICIENCY ANAEMIA [None]
  - GASTROINTESTINAL HAEMORRHAGE [None]
